FAERS Safety Report 14190867 (Version 1)
Quarter: 2017Q4

REPORT INFORMATION
  Report Type: Spontaneous
  Country: NL (occurrence: NL)
  Receive Date: 20171115
  Receipt Date: 20171115
  Transmission Date: 20180321
  Serious: Yes (Hospitalization)
  Sender: FDA-Public Use
  Company Number: NL-009507513-1711NLD002372

PATIENT
  Age: 78 Year
  Sex: Female

DRUGS (8)
  1. CHOLECALCIFEROL [Concomitant]
     Active Substance: CHOLECALCIFEROL
     Dosage: 1 TIME A MONTH 50000 IU
     Route: 048
  2. VALERIAN [Concomitant]
     Active Substance: VALERIAN
     Dosage: 1 TIME A DAY 15-20 DROPS; ORAL DROPS
     Route: 048
  3. ACETAMINOPHEN (+) TRAMADOL HYDROCHLORIDE [Concomitant]
     Active Substance: ACETAMINOPHEN\TRAMADOL HYDROCHLORIDE
     Dosage: 3 TIMES A DAY 2 UNITS
     Route: 048
  4. MIRTAZAPINE. [Suspect]
     Active Substance: MIRTAZAPINE
     Indication: DEPRESSION
     Dosage: 1 TIME A DAY 1 UNIT
     Route: 048
     Dates: start: 20171025, end: 20171102
  5. APC (ACETAMINOPHEN (+) ASPIRIN (+) CAFFEINE) [Concomitant]
     Dosage: ROTER ACETAMINOPHEN/ASPIRIN/CAFFEINE (APC) 1 TIME A DAY 2 UNITS
     Route: 048
  6. ZOLPIDEM [Concomitant]
     Active Substance: ZOLPIDEM\ZOLPIDEM TARTRATE
     Dosage: 1 TIME A DAY 10MG IF NEEDED
     Route: 048
     Dates: start: 20171023
  7. OXAZEPAM. [Concomitant]
     Active Substance: OXAZEPAM
     Dosage: 1 TIME A DAY 10MG IF NEEDED
     Route: 048
     Dates: start: 20171023
  8. CYANOCOBALAMIN. [Concomitant]
     Active Substance: CYANOCOBALAMIN
     Dosage: 1 TIME DAY 1 MCG
     Route: 048

REACTIONS (2)
  - Hyponatraemia [Recovering/Resolving]
  - Inappropriate antidiuretic hormone secretion [Recovering/Resolving]

NARRATIVE: CASE EVENT DATE: 20171102
